FAERS Safety Report 7482193-5 (Version None)
Quarter: 2011Q2

REPORT INFORMATION
  Report Type: 
  Country: None (occurrence: None)
  Receive Date: 20110516
  Receipt Date: 20110511
  Transmission Date: 20111010
  Serious: Yes (Other)
  Sender: FDA-Public Use
  Company Number: US-PFIZER INC-2011101272

PATIENT
  Sex: Female
  Weight: 61.224 kg

DRUGS (1)
  1. FLUCONAZOLE [Suspect]
     Indication: FUNGAL INFECTION
     Dosage: 150 MG, WEEKLY
     Dates: start: 20110503, end: 20110510

REACTIONS (2)
  - SWELLING FACE [None]
  - RASH [None]
